FAERS Safety Report 13341707 (Version 1)
Quarter: 2017Q1

REPORT INFORMATION
  Report Type: Spontaneous
  Country: US (occurrence: US)
  Receive Date: 20170316
  Receipt Date: 20170316
  Transmission Date: 20170428
  Serious: No
  Sender: FDA-Public Use
  Company Number: US-ROCHE-1860748

PATIENT
  Age: 94 Year
  Sex: Female

DRUGS (6)
  1. BISACODYL. [Concomitant]
     Active Substance: BISACODYL
  2. ERIVEDGE [Suspect]
     Active Substance: VISMODEGIB
     Indication: BASAL CELL CARCINOMA
     Route: 048
     Dates: start: 20160628
  3. BENEPROTEIN [Concomitant]
     Active Substance: DIETARY SUPPLEMENT
  4. ASPIRIN. [Concomitant]
     Active Substance: ASPIRIN
     Dosage: ADULT LOW DOSE
     Route: 065
  5. DILTIAZEM HCL [Concomitant]
     Active Substance: DILTIAZEM HYDROCHLORIDE
  6. ACETAMINOPHEN. [Concomitant]
     Active Substance: ACETAMINOPHEN

REACTIONS (1)
  - Bronchitis [Unknown]

NARRATIVE: CASE EVENT DATE: 20161122
